FAERS Safety Report 6123505-4 (Version None)
Quarter: 2009Q1

REPORT INFORMATION
  Report Type: 
  Country: None (occurrence: None)
  Receive Date: 20090318
  Receipt Date: 20090305
  Transmission Date: 20090719
  Serious: Yes (Hospitalization)
  Sender: FDA-Public Use
  Company Number: JP-ROCHE-617090

PATIENT
  Sex: Female

DRUGS (5)
  1. TAMIFLU [Suspect]
     Indication: INFLUENZA
     Route: 048
     Dates: start: 20090130, end: 20090203
  2. LOXONIN [Concomitant]
     Dosage: FORM: ORAL FORMULATION NOS
     Route: 048
     Dates: start: 20090116, end: 20090209
  3. MUCOSTA [Concomitant]
     Dosage: FORM: ORAL FORMULATION NOS
     Route: 048
     Dates: start: 20090116, end: 20090209
  4. LORAMET [Concomitant]
     Route: 048
     Dates: start: 20090128
  5. PL [Concomitant]
     Route: 048
     Dates: start: 20090129, end: 20090130

REACTIONS (1)
  - PLATELET COUNT DECREASED [None]
